FAERS Safety Report 11114523 (Version 2)
Quarter: 2015Q2

REPORT INFORMATION
  Report Type: Report from Study
  Country: US (occurrence: US)
  Receive Date: 20150515
  Receipt Date: 20150526
  Transmission Date: 20150821
  Serious: Yes (Hospitalization, Other)
  Sender: FDA-Public Use
  Company Number: US-AMGEN-USASL2015037278

PATIENT
  Age: 37 Year
  Sex: Female

DRUGS (5)
  1. BLINCYTO [Suspect]
     Active Substance: BLINATUMOMAB
     Indication: ACUTE LYMPHOCYTIC LEUKAEMIA
     Route: 065
     Dates: start: 20150315, end: 20150324
  2. ACYCLOVIR                          /00587301/ [Concomitant]
     Active Substance: ACYCLOVIR
     Dosage: UNK
  3. PROVERA [Concomitant]
     Active Substance: MEDROXYPROGESTERONE ACETATE
     Indication: MENSTRUATION NORMAL
     Dosage: UNK
     Dates: start: 20140322
  4. CIPRO                              /00697201/ [Concomitant]
     Active Substance: CIPROFLOXACIN
     Dosage: UNK
  5. FLUCONAZOLE ACCORD [Concomitant]
     Dosage: UNK

REACTIONS (3)
  - Drug effect incomplete [Unknown]
  - Hospitalisation [Not Recovered/Not Resolved]
  - Bone marrow leukaemic cell infiltration [Not Recovered/Not Resolved]

NARRATIVE: CASE EVENT DATE: 20150415
